FAERS Safety Report 14308340 (Version 1)
Quarter: 2017Q4

REPORT INFORMATION
  Report Type: Spontaneous
  Country: US (occurrence: US)
  Receive Date: 20171220
  Receipt Date: 20171220
  Transmission Date: 20180321
  Serious: Yes (Hospitalization, Other)
  Sender: FDA-Public Use
  Company Number: US-BAYER-2017-238831

PATIENT
  Age: 86 Year
  Sex: Female
  Weight: 72.56 kg

DRUGS (11)
  1. LECITHIN [Concomitant]
     Active Substance: LECITHIN
  2. MULTIVITAMIN [Concomitant]
     Active Substance: VITAMINS
  3. NEURAPAS [Concomitant]
  4. COENZYME Q10 [Concomitant]
     Active Substance: UBIDECARENONE
  5. BAYER ASPIRIN [Suspect]
     Active Substance: ASPIRIN
     Dosage: UNK
     Dates: start: 201702
  6. BIOTIN [Concomitant]
     Active Substance: BIOTIN
  7. PLAVIX [Concomitant]
     Active Substance: CLOPIDOGREL BISULFATE
  8. LUTEIN [Concomitant]
     Active Substance: LUTEIN
  9. LASIX [Concomitant]
     Active Substance: FUROSEMIDE
  10. RESVERATROL [Concomitant]
     Active Substance: DIETARY SUPPLEMENT\RESVERATROL
  11. LIPITOR [Concomitant]
     Active Substance: ATORVASTATIN CALCIUM

REACTIONS (20)
  - Gastric ulcer haemorrhage [Unknown]
  - Mitral valve calcification [Unknown]
  - Atrioventricular block first degree [Unknown]
  - Pallor [Unknown]
  - Hyperhidrosis [Unknown]
  - Overweight [Unknown]
  - Dyspepsia [Unknown]
  - Aortic stenosis [Unknown]
  - Balance disorder [Unknown]
  - Faeces discoloured [Unknown]
  - Cerebrovascular accident [Unknown]
  - Essential hypertension [Unknown]
  - Visual impairment [Unknown]
  - Barrett^s oesophagus [Unknown]
  - Diarrhoea [Unknown]
  - Hyperlipidaemia [Unknown]
  - Blood glucose increased [Unknown]
  - Left ventricular dysfunction [Unknown]
  - Cardiac failure congestive [Unknown]
  - Hiatus hernia [Unknown]

NARRATIVE: CASE EVENT DATE: 201702
